FAERS Safety Report 7628635-3 (Version None)
Quarter: 2011Q3

REPORT INFORMATION
  Report Type: 
  Country: None (occurrence: None)
  Receive Date: 20110721
  Receipt Date: 20110721
  Transmission Date: 20111222
  Serious: Yes (Other)
  Sender: FDA-Public Use
  Company Number: None

PATIENT
  Sex: Female
  Weight: 95.2554 kg

DRUGS (3)
  1. WELLBUTRIN SR [Suspect]
     Indication: FATIGUE
     Dosage: ONE QD ORALLY
     Route: 048
     Dates: start: 20050401
  2. WELLBUTRIN SR [Suspect]
     Indication: ANXIETY
     Dosage: ONE QD ORALLY
     Route: 048
     Dates: start: 20050401
  3. WELLBUTRIN [Suspect]
     Indication: DEPRESSION
     Dosage: ONE BID ORALLY
     Route: 048
     Dates: start: 20000501

REACTIONS (3)
  - FATIGUE [None]
  - TONGUE DISORDER [None]
  - DEPRESSION [None]
